FAERS Safety Report 18258947 (Version 1)
Quarter: 2020Q3

REPORT INFORMATION
  Report Type: Report from Study
  Country: CA (occurrence: CA)
  Receive Date: 20200911
  Receipt Date: 20200911
  Transmission Date: 20201103
  Serious: Yes (Other)
  Sender: FDA-Public Use
  Company Number: CA-JNJFOC-20200530711

PATIENT
  Age: 16 Year
  Sex: Female
  Weight: 72 kg

DRUGS (1)
  1. REMICADE [Suspect]
     Active Substance: INFLIXIMAB
     Indication: COLITIS ULCERATIVE
     Dosage: LAST INFUSION ON 30?MAY?2020, INFUSION NUMBER 5_500 MG
     Route: 042
     Dates: start: 20191220

REACTIONS (3)
  - General physical health deterioration [Unknown]
  - Diarrhoea [Not Recovered/Not Resolved]
  - Haematochezia [Not Recovered/Not Resolved]

NARRATIVE: CASE EVENT DATE: 20200524
